FAERS Safety Report 5763610-5 (Version None)
Quarter: 2008Q2

REPORT INFORMATION
  Report Type: 
  Country: None (occurrence: None)
  Receive Date: 20080610
  Receipt Date: 20080602
  Transmission Date: 20081010
  Serious: Yes (Other)
  Sender: FDA-Public Use
  Company Number: PHHY2008JP10028

PATIENT

DRUGS (2)
  1. DIOVAN [Suspect]
     Dosage: UNK
     Route: 048
     Dates: start: 20071101
  2. LIPITOR [Concomitant]

REACTIONS (3)
  - GLOSSODYNIA [None]
  - PAIN [None]
  - SWOLLEN TONGUE [None]
